FAERS Safety Report 21140439 (Version 2)
Quarter: 2022Q3

REPORT INFORMATION
  Report Type: Spontaneous
  Country: IT (occurrence: IT)
  Receive Date: 20220728
  Receipt Date: 20220820
  Transmission Date: 20221026
  Serious: Yes (Hospitalization)
  Sender: FDA-Public Use
  Company Number: IT-TEVA-2022-IT-2057733

PATIENT
  Sex: Female

DRUGS (1)
  1. VENLAFAXINE [Suspect]
     Active Substance: VENLAFAXINE HYDROCHLORIDE
     Indication: Product used for unknown indication
     Dosage: 150 MILLIGRAM DAILY;
     Route: 063

REACTIONS (7)
  - Sedation complication [Recovering/Resolving]
  - Poor weight gain neonatal [Recovering/Resolving]
  - Fatigue [Recovering/Resolving]
  - Hypotonia neonatal [Recovering/Resolving]
  - Mental disorder [Recovering/Resolving]
  - Toxicity to various agents [Unknown]
  - Maternal exposure during breast feeding [Unknown]
